FAERS Safety Report 10232720 (Version 1)
Quarter: 2014Q2

REPORT INFORMATION
  Report Type: Spontaneous
  Country: US (occurrence: None)
  Receive Date: 20140610
  Receipt Date: 20140610
  Transmission Date: 20141212
  Serious: Yes (Hospitalization)
  Sender: FDA-Public Use
  Company Number: AUR-APL-2014-06144

PATIENT
  Age: 19 Year
  Sex: Male

DRUGS (2)
  1. CITALOPRAM [Suspect]
     Indication: DEPRESSION
     Dosage: UNKNOWN
  2. METHADONE [Suspect]
     Indication: PRODUCT USED FOR UNKNOWN INDICATION
     Dosage: UNKNOWN

REACTIONS (17)
  - Cardiomyopathy [None]
  - Toxicity to various agents [None]
  - Unresponsive to stimuli [None]
  - Vomiting [None]
  - Convulsion [None]
  - Atrial fibrillation [None]
  - Electrocardiogram QT prolonged [None]
  - Troponin I increased [None]
  - Hyperreflexia [None]
  - Clonus [None]
  - Hypotension [None]
  - Hypothermia [None]
  - Ejection fraction decreased [None]
  - Cardiogenic shock [None]
  - Respiratory acidosis [None]
  - Hyperlactacidaemia [None]
  - Drug screen positive [None]
